FAERS Safety Report 10209882 (Version 1)
Quarter: 2014Q2

REPORT INFORMATION
  Report Type: Spontaneous
  Country: MX (occurrence: MX)
  Receive Date: 20140602
  Receipt Date: 20140602
  Transmission Date: 20141212
  Serious: Yes (Other)
  Sender: FDA-Public Use
  Company Number: MX-TAKEDA-2014TJP006175

PATIENT
  Age: 42 Year
  Sex: Male

DRUGS (1)
  1. COMPETACT [Suspect]
     Indication: TYPE 2 DIABETES MELLITUS
     Dosage: UNK
     Route: 065
     Dates: end: 20140520

REACTIONS (2)
  - Jaundice [Unknown]
  - Hyperphagia [Unknown]
